FAERS Safety Report 4710095-3 (Version None)
Quarter: 2005Q3

REPORT INFORMATION
  Report Type: 
  Country: None (occurrence: None)
  Receive Date: 20050708
  Receipt Date: 20050708
  Transmission Date: 20060218
  Serious: Yes (Life-Threatening)
  Sender: FDA-Public Use
  Company Number: None

PATIENT
  Age: 59 Year
  Sex: Male
  Weight: 86.1834 kg

DRUGS (5)
  1. TARKA [Suspect]
     Indication: ESSENTIAL HYPERTENSION
     Dosage: SEE IMAGE
     Route: 048
     Dates: start: 20050616
  2. TARKA [Suspect]
     Indication: ESSENTIAL HYPERTENSION
     Dosage: SEE IMAGE
     Route: 048
     Dates: start: 20050621
  3. . [Concomitant]
  4. ALLOPURINOL [Concomitant]
  5. ASPIRIN [Concomitant]

REACTIONS (6)
  - ATRIOVENTRICULAR BLOCK SECOND DEGREE [None]
  - BLOOD PRESSURE INADEQUATELY CONTROLLED [None]
  - ELECTROCARDIOGRAM P WAVE ABNORMAL [None]
  - ELECTROCARDIOGRAM PR PROLONGATION [None]
  - ELECTROCARDIOGRAM QT CORRECTED INTERVAL PROLONGED [None]
  - EXTRASYSTOLES [None]
